FAERS Safety Report 5723794-1 (Version None)
Quarter: 2008Q2

REPORT INFORMATION
  Report Type: 
  Country: None (occurrence: None)
  Receive Date: 20080429
  Receipt Date: 20080429
  Transmission Date: 20081010
  Serious: Yes (Life-Threatening)
  Sender: FDA-Public Use
  Company Number: None

PATIENT
  Age: 65 Year
  Sex: Male
  Weight: 65 kg

DRUGS (1)
  1. CLOFARABINE [Suspect]
     Indication: ACUTE MYELOID LEUKAEMIA
     Dates: start: 20080101, end: 20080101

REACTIONS (4)
  - CAPILLARY LEAK SYNDROME [None]
  - CYTOKINE STORM [None]
  - MULTI-ORGAN FAILURE [None]
  - PERICARDIAL EFFUSION [None]
